FAERS Safety Report 4371347-2 (Version None)
Quarter: 2004Q2

REPORT INFORMATION
  Report Type: 
  Country: None (occurrence: None)
  Receive Date: 20040601
  Receipt Date: 20040514
  Transmission Date: 20050107
  Serious: Yes (Death)
  Sender: FDA-Public Use
  Company Number: 193199

PATIENT
  Age: 52 Year
  Sex: Female

DRUGS (6)
  1. AVONEX [Suspect]
     Indication: MULTIPLE SCLEROSIS
     Dosage: 30 MCG QW IM
     Route: 030
     Dates: start: 20030212
  2. AVONEX [Suspect]
     Indication: MULTIPLE SCLEROSIS
     Dosage: 30 MCG QW IM
     Route: 030
     Dates: end: 20040215
  3. PROVIGIL [Concomitant]
  4. BACLOFEN [Concomitant]
  5. STEROIDS NOS [Concomitant]
  6. COPAXONE [Concomitant]

REACTIONS (2)
  - GASTRIC CANCER [None]
  - METASTASES TO LIVER [None]
